FAERS Safety Report 7747748-9 (Version None)
Quarter: 2011Q3

REPORT INFORMATION
  Report Type: 
  Country: None (occurrence: None)
  Receive Date: 20110913
  Receipt Date: 20110907
  Transmission Date: 20111222
  Serious: Yes (Hospitalization)
  Sender: FDA-Public Use
  Company Number: CHPA2011US12039

PATIENT
  Age: 3 Year
  Sex: Male

DRUGS (2)
  1. TRIAMINIC NIGHT TIME COLD + COUGH [Suspect]
     Indication: RHINORRHOEA
  2. TRIAMINIC NIGHT TIME COLD + COUGH [Suspect]
     Indication: COUGH
     Dosage: UNK, ONCE/SINGLE
     Route: 048
     Dates: start: 20110905, end: 20110905

REACTIONS (5)
  - PULMONARY OEDEMA [None]
  - HYPERSENSITIVITY [None]
  - OVERDOSE [None]
  - INCORRECT DOSE ADMINISTERED [None]
  - WHITE BLOOD CELL COUNT INCREASED [None]
